FAERS Safety Report 7959332-2 (Version None)
Quarter: 2011Q4

REPORT INFORMATION
  Report Type: 
  Country: None (occurrence: None)
  Receive Date: 20111206
  Receipt Date: 20111202
  Transmission Date: 20120403
  Serious: Yes (Hospitalization)
  Sender: FDA-Public Use
  Company Number: IT-PFIZER INC-2011285366

PATIENT
  Age: 50 Year
  Sex: Male

DRUGS (7)
  1. DOXORUBICIN HCL [Suspect]
     Indication: DIFFUSE LARGE B-CELL LYMPHOMA
     Dosage: 100 MG, CYCLIC
     Route: 042
     Dates: start: 20111003
  2. CYCLOPHOSPHAMIDE [Suspect]
     Indication: DIFFUSE LARGE B-CELL LYMPHOMA
     Dosage: 1500 MG, CYCLIC
     Route: 042
     Dates: start: 20111003
  3. COLCHICINA ^LIRCA^ [Concomitant]
  4. COUMADIN [Concomitant]
  5. VINCRISTINE [Suspect]
     Indication: DIFFUSE LARGE B-CELL LYMPHOMA
     Dosage: 2 MG, CYCLIC
     Route: 042
     Dates: start: 20111003
  6. PANTOPRAZOLE SODIUM [Concomitant]
  7. MABTHERA [Suspect]
     Indication: DIFFUSE LARGE B-CELL LYMPHOMA
     Dosage: 700 MG, CYCLIC
     Route: 042
     Dates: start: 20111004

REACTIONS (2)
  - FEBRILE NEUTROPENIA [None]
  - GASTROENTERITIS [None]
